FAERS Safety Report 6589647-4 (Version None)
Quarter: 2010Q1

REPORT INFORMATION
  Report Type: 
  Country: None (occurrence: None)
  Receive Date: 20100212
  Receipt Date: 20100128
  Transmission Date: 20100710
  Serious: Yes (Other)
  Sender: FDA-Public Use
  Company Number: AVE_01538_2010

PATIENT
  Sex: Female
  Weight: 49.8957 kg

DRUGS (5)
  1. CLONIDINE TRANSDERMAL SYSTEM [Suspect]
     Indication: HYPERTENSION
     Dosage: (VIA 1/WEEKLY PATCH TRANSDERMAL)
     Route: 062
     Dates: start: 20100101
  2. MAXZIDE [Concomitant]
  3. TOPROL-XL [Concomitant]
  4. SYNTHROID [Concomitant]
  5. CATAPRES /00171101/ [Concomitant]

REACTIONS (1)
  - HYPOTENSION [None]
